FAERS Safety Report 8872712 (Version 1)
Quarter: 2012Q4

REPORT INFORMATION
  Report Type: Report from Study
  Country: BR (occurrence: BR)
  Receive Date: 20121030
  Receipt Date: 20121030
  Transmission Date: 20130627
  Serious: Yes (Other)
  Sender: FDA-Public Use
  Company Number: BR-ROCHE-1150293

PATIENT
  Sex: Male
  Weight: 67 kg

DRUGS (8)
  1. BEVACIZUMAB [Suspect]
     Indication: COLORECTAL CANCER
     Dosage: total 12 infusions
     Route: 042
     Dates: start: 20110905, end: 20111125
  2. IRINOTECAN [Concomitant]
     Indication: COLORECTAL CANCER
     Dosage: total 12 infusions
     Route: 065
     Dates: start: 20110905, end: 20111125
  3. IRINOTECAN [Concomitant]
     Route: 065
     Dates: start: 20111229, end: 20121022
  4. FLUOROURACIL [Concomitant]
     Indication: COLORECTAL CANCER
     Dosage: total 12 infusions
     Route: 065
     Dates: start: 20110905, end: 20111125
  5. FLUOROURACIL [Concomitant]
     Dosage: 1 cycle of two weeks, total 12 cycles
     Route: 065
     Dates: start: 20110103, end: 20110801
  6. LEUCOVORIN [Concomitant]
     Indication: COLORECTAL CANCER
     Dosage: 1 cycle of 2 weeks, total 12 cycles
     Route: 065
     Dates: start: 20110905, end: 20111125
  7. LEUCOVORIN [Concomitant]
     Route: 065
     Dates: start: 20110103, end: 20110801
  8. CETUXIMAB [Concomitant]
     Dosage: total of 12 infusions
     Route: 065
     Dates: start: 20111229, end: 20121022

REACTIONS (1)
  - Disease progression [Unknown]
